FAERS Safety Report 15115850 (Version 1)
Quarter: 2018Q3

REPORT INFORMATION
  Report Type: Spontaneous
  Country: FR (occurrence: FR)
  Receive Date: 20180706
  Receipt Date: 20180706
  Transmission Date: 20181010
  Serious: Yes (Other)
  Sender: FDA-Public Use
  Company Number: PHHY2018FR031600

PATIENT
  Age: 14 Month
  Sex: Female

DRUGS (1)
  1. PROGESTERONE. [Suspect]
     Active Substance: PROGESTERONE
     Indication: PRODUCT USED FOR UNKNOWN INDICATION
     Dosage: UNK
     Route: 065

REACTIONS (8)
  - Coma [Recovered/Resolved]
  - Agitation [Recovered/Resolved]
  - Gait disturbance [Recovered/Resolved]
  - Dysstasia [Recovered/Resolved]
  - Irritability [Recovered/Resolved]
  - Accidental exposure to product by child [Unknown]
  - Altered state of consciousness [Recovered/Resolved]
  - Somnolence [Recovered/Resolved]
